FAERS Safety Report 13828913 (Version 1)
Quarter: 2017Q3

REPORT INFORMATION
  Report Type: Spontaneous
  Country: US (occurrence: US)
  Receive Date: 20170803
  Receipt Date: 20170803
  Transmission Date: 20171127
  Serious: No
  Sender: FDA-Public Use
  Company Number: US-JNJFOC-20140703355

PATIENT
  Sex: Female
  Weight: 63.6 kg

DRUGS (1)
  1. AXERT [Suspect]
     Active Substance: ALMOTRIPTAN MALATE
     Indication: MIGRAINE
     Route: 048

REACTIONS (9)
  - Intervertebral disc protrusion [Unknown]
  - Drug dose omission [Not Recovered/Not Resolved]
  - Abnormal loss of weight [Unknown]
  - Therapeutic response unexpected [Recovered/Resolved]
  - Back injury [Unknown]
  - Headache [Recovered/Resolved]
  - Musculoskeletal discomfort [Unknown]
  - Weight increased [Unknown]
  - Glycosylated haemoglobin increased [Unknown]
